FAERS Safety Report 8349348-9 (Version None)
Quarter: 2012Q2

REPORT INFORMATION
  Report Type: 
  Country: None (occurrence: None)
  Receive Date: 20120510
  Receipt Date: 20120504
  Transmission Date: 20120825
  Serious: Yes (Other)
  Sender: FDA-Public Use
  Company Number: BR-SANOFI-AVENTIS-2012SA031634

PATIENT
  Sex: Male
  Weight: 91 kg

DRUGS (5)
  1. METFORMIN HCL [Concomitant]
     Route: 048
     Dates: start: 20060101
  2. AMARYL [Suspect]
     Route: 048
     Dates: start: 20111101
  3. ALPRAZOLAM [Concomitant]
     Indication: INSOMNIA
     Dosage: AT NIGHT
     Route: 048
     Dates: start: 20090101
  4. LOSARTAN POTASSIUM [Concomitant]
     Route: 048
     Dates: start: 20110101
  5. ALL OTHER THERAPEUTIC PRODUCTS [Concomitant]
     Route: 048
     Dates: start: 20090101

REACTIONS (4)
  - ASPARTATE AMINOTRANSFERASE INCREASED [None]
  - HEPATOMEGALY [None]
  - ALANINE AMINOTRANSFERASE INCREASED [None]
  - BLOOD CREATINE PHOSPHOKINASE INCREASED [None]
